FAERS Safety Report 23795685 (Version 2)
Quarter: 2024Q2

REPORT INFORMATION
  Report Type: Spontaneous
  Country: US (occurrence: US)
  Receive Date: 20240429
  Receipt Date: 20240527
  Transmission Date: 20240716
  Serious: No
  Sender: FDA-Public Use
  Company Number: US-PFIZER INC-202400095718

PATIENT
  Age: 85 Year
  Sex: Male
  Weight: 124.72 kg

DRUGS (14)
  1. VYNDAQEL [Suspect]
     Active Substance: TAFAMIDIS MEGLUMINE
     Indication: Cardiac amyloidosis
     Dosage: 4 CAPSULES 20MG (EACH) ONCE DAILY
     Route: 048
     Dates: start: 202404
  2. ZYLOPRIM [Concomitant]
     Active Substance: ALLOPURINOL
     Dosage: 150 MG, DAILY
     Route: 048
  3. ALPHA LIPOIC ACID [Concomitant]
     Active Substance: .ALPHA.-LIPOIC ACID
     Dosage: TAKE 100 MG BY MOUTH NIGHTLY. OTC
     Route: 048
  4. ELIQUIS [Concomitant]
     Active Substance: APIXABAN
     Dosage: 2.5 MG, 2X/DAY
     Route: 048
  5. LIPITOR [Concomitant]
     Active Substance: ATORVASTATIN CALCIUM
     Dosage: TAKE ONE TABLET BY MOUTH ONCE NIGHTLY
     Route: 048
  6. BUMEX [Concomitant]
     Active Substance: BUMETANIDE
     Dosage: 2 MG, 2X/DAY
     Route: 048
  7. ROCALTROL [Concomitant]
     Active Substance: CALCITRIOL
     Dosage: 0.25 UG, DAILY
     Route: 048
  8. DULAGLUTIDE [Concomitant]
     Active Substance: DULAGLUTIDE
     Dosage: 0.5 ML, WEEKLY
     Route: 058
  9. PROSCAR [Concomitant]
     Active Substance: FINASTERIDE
     Dosage: 5 MG, DAILY
     Route: 048
  10. MAG DELAY [Concomitant]
     Dosage: 500 MG, DAILY
     Route: 048
  11. TOPROL XL [Concomitant]
     Active Substance: METOPROLOL SUCCINATE
     Dosage: 25 MG, 2X/DAY
     Route: 048
  12. PRED FORTE [Concomitant]
     Active Substance: PREDNISOLONE ACETATE
     Dosage: PLACE 1 DROP INTO ONE EYE1 FTIMES DAILY
  13. FLOMAX [Concomitant]
     Active Substance: TAMSULOSIN HYDROCHLORIDE
     Dosage: 0.4 MG, DAILY
     Route: 048
  14. INSULIN DEGLUDEC [Concomitant]
     Active Substance: INSULIN DEGLUDEC
     Dosage: 70 UNIT DAILY
     Route: 058

REACTIONS (4)
  - Drug ineffective [Unknown]
  - Insomnia [Unknown]
  - Somnolence [Unknown]
  - Fatigue [Unknown]

NARRATIVE: CASE EVENT DATE: 20240401
